FAERS Safety Report 6676121-X (Version None)
Quarter: 2010Q2

REPORT INFORMATION
  Report Type: 
  Country: None (occurrence: None)
  Receive Date: 20100412
  Receipt Date: 20100331
  Transmission Date: 20101027
  Serious: Yes (Other)
  Sender: FDA-Public Use
  Company Number: JP-PFIZER INC-2010043138

PATIENT

DRUGS (1)
  1. ZITHROMAX [Suspect]
     Indication: RHINORRHOEA
     Dosage: 500 MG/DAY

REACTIONS (1)
  - OTITIS MEDIA [None]
